FAERS Safety Report 12449524 (Version 1)
Quarter: 2016Q2

REPORT INFORMATION
  Report Type: Report from Study
  Country: US (occurrence: US)
  Receive Date: 20160608
  Receipt Date: 20160608
  Transmission Date: 20160815
  Serious: Yes (Hospitalization, Disabling, Other)
  Sender: FDA-Public Use
  Company Number: US-ABBVIE-16K-163-1642340-00

PATIENT
  Age: 66 Year
  Sex: Male
  Weight: 68.1 kg

DRUGS (5)
  1. HUMIRA [Suspect]
     Active Substance: ADALIMUMAB
     Indication: RHEUMATOID ARTHRITIS
     Route: 058
     Dates: start: 201412, end: 201601
  2. FLOMAX [Concomitant]
     Active Substance: TAMSULOSIN HYDROCHLORIDE
     Indication: BENIGN PROSTATIC HYPERPLASIA
  3. AMLODIPINE [Concomitant]
     Active Substance: AMLODIPINE BESYLATE
     Indication: HYPERTENSION
  4. FENTANYL. [Concomitant]
     Active Substance: FENTANYL
     Indication: RHEUMATOID ARTHRITIS
  5. FENTANYL. [Concomitant]
     Active Substance: FENTANYL
     Indication: SPONDYLOARTHROPATHY

REACTIONS (12)
  - Hypoaesthesia [Recovering/Resolving]
  - Large intestine perforation [Recovered/Resolved]
  - Loss of consciousness [Recovered/Resolved]
  - Abasia [Recovering/Resolving]
  - Gait disturbance [Recovering/Resolving]
  - Intestinal sepsis [Recovering/Resolving]
  - Infrequent bowel movements [Recovered/Resolved]
  - Mobility decreased [Recovered/Resolved]
  - Asthenia [Recovering/Resolving]
  - Amnesia [Not Recovered/Not Resolved]
  - Weight bearing difficulty [Recovering/Resolving]
  - Abdominal pain [Recovered/Resolved]

NARRATIVE: CASE EVENT DATE: 2015
